FAERS Safety Report 8371919-4 (Version None)
Quarter: 2012Q2

REPORT INFORMATION
  Report Type: 
  Country: None (occurrence: None)
  Receive Date: 20120518
  Receipt Date: 20120504
  Transmission Date: 20120825
  Serious: No
  Sender: FDA-Public Use
  Company Number: US-ROCHE-GNE216319

PATIENT
  Sex: Male

DRUGS (2)
  1. XOLAIR [Suspect]
     Indication: ASTHMA
     Route: 030
  2. XOLAIR [Suspect]
     Dosage: 1 INJECTION
     Route: 058
     Dates: start: 20070501

REACTIONS (2)
  - NO ADVERSE EVENT [None]
  - DRUG ADMINISTRATION ERROR [None]
